FAERS Safety Report 18125893 (Version 1)
Quarter: 2020Q3

REPORT INFORMATION
  Report Type: Spontaneous
  Country: CA (occurrence: CA)
  Receive Date: 20200808
  Receipt Date: 20200808
  Transmission Date: 20201103
  Serious: Yes (Hospitalization)
  Sender: FDA-Public Use
  Company Number: CA-TEVA-2020-CA-1811207

PATIENT
  Age: 71 Year
  Sex: Female

DRUGS (9)
  1. PANTOLOC [Concomitant]
     Active Substance: PANTOPRAZOLE SODIUM
  2. METHOTREXATE. [Suspect]
     Active Substance: METHOTREXATE
     Indication: VASCULITIS
     Route: 058
  3. CALCIUM [Concomitant]
     Active Substance: CALCIUM
  4. CELEBREX [Concomitant]
     Active Substance: CELECOXIB
  5. LEUCOVORIN. [Concomitant]
     Active Substance: LEUCOVORIN
  6. PROMETRIUM [Concomitant]
     Active Substance: PROGESTERONE
  7. IRBESARTAN. [Concomitant]
     Active Substance: IRBESARTAN
  8. METHOTREXATE. [Suspect]
     Active Substance: METHOTREXATE
     Indication: ANTINEUTROPHIL CYTOPLASMIC ANTIBODY POSITIVE
  9. VITAMIN D [Concomitant]
     Active Substance: VITAMIN D NOS

REACTIONS (5)
  - Dyspnoea [Unknown]
  - Computerised tomogram thorax abnormal [Unknown]
  - Eosinophil percentage increased [Unknown]
  - Lymphocyte percentage increased [Unknown]
  - Pneumonitis [Unknown]
